APPROVED DRUG PRODUCT: LIDOCAINE HYDROCHLORIDE AND EPINEPHRINE
Active Ingredient: EPINEPHRINE; LIDOCAINE HYDROCHLORIDE
Strength: 0.005MG/ML;1.5%
Dosage Form/Route: INJECTABLE;INJECTION
Application: A208475 | Product #001 | TE Code: AP
Applicant: B BRAUN MEDICAL INC
Approved: Sep 8, 2021 | RLD: No | RS: No | Type: RX